FAERS Safety Report 8541668-8 (Version None)
Quarter: 2012Q3

REPORT INFORMATION
  Report Type: 
  Country: None (occurrence: None)
  Receive Date: 20120726
  Receipt Date: 20120717
  Transmission Date: 20120928
  Serious: Yes (Other)
  Sender: FDA-Public Use
  Company Number: JP-GLAXOSMITHKLINE-B0816059A

PATIENT
  Age: 19 Year
  Sex: Female

DRUGS (9)
  1. PAXIL [Suspect]
     Indication: DEPRESSION
     Dosage: 10MG PER DAY
     Route: 048
  2. PAXIL [Suspect]
     Dosage: 40MG PER DAY
     Route: 048
  3. PAXIL [Suspect]
     Dosage: 30MG PER DAY
     Route: 048
  4. TRAZODONE HYDROCHLORIDE [Concomitant]
     Dosage: 75MG PER DAY
     Route: 048
  5. PAXIL [Suspect]
     Dosage: 20MG PER DAY
     Route: 048
  6. TRAZODONE HYDROCHLORIDE [Concomitant]
     Indication: DEPRESSION
     Dosage: 25MG PER DAY
     Route: 048
  7. PAXIL [Suspect]
     Dosage: 20MG PER DAY
     Route: 048
  8. TRAZODONE HYDROCHLORIDE [Concomitant]
     Dosage: 50MG PER DAY
     Route: 048
  9. PAXIL [Suspect]
     Dosage: 10MG PER DAY
     Route: 048

REACTIONS (37)
  - AUTOPHOBIA [None]
  - IRRITABILITY [None]
  - PSYCHOTIC DISORDER [None]
  - LOGORRHOEA [None]
  - EAR DISCOMFORT [None]
  - TINNITUS [None]
  - DYSPNOEA [None]
  - DELUSION OF GRANDEUR [None]
  - TREMOR [None]
  - PSYCHIATRIC SYMPTOM [None]
  - HYPERREFLEXIA [None]
  - INSOMNIA [None]
  - ABNORMAL BEHAVIOUR [None]
  - THINKING ABNORMAL [None]
  - LACRIMATION INCREASED [None]
  - MYOCLONUS [None]
  - WHEEZING [None]
  - FEAR [None]
  - HYPERHIDROSIS [None]
  - HICCUPS [None]
  - SEROTONIN SYNDROME [None]
  - EMOTIONAL DISTRESS [None]
  - HALLUCINATION, AUDITORY [None]
  - TACHYCARDIA [None]
  - HYPERVENTILATION [None]
  - RESTLESSNESS [None]
  - LISTLESS [None]
  - DECREASED APPETITE [None]
  - PYREXIA [None]
  - CONFUSIONAL STATE [None]
  - RESPIRATION ABNORMAL [None]
  - DEPRESSED MOOD [None]
  - NAUSEA [None]
  - SOLILOQUY [None]
  - ANXIETY [None]
  - HYPOMANIA [None]
  - INAPPROPRIATE AFFECT [None]
